FAERS Safety Report 8774327 (Version 2)
Quarter: 2012Q4

REPORT INFORMATION
  Report Type: 
  Country: US (occurrence: US)
  Receive Date: 20120907
  Receipt Date: 20120914
  Transmission Date: 20130627
  Serious: Yes (Hospitalization, Other)
  Sender: FDA-Public Use
  Company Number: US-PFIZER INC-2012219741

PATIENT
  Age: 57 Year
  Sex: Male
  Weight: 63.49 kg

DRUGS (3)
  1. LYRICA [Suspect]
     Indication: NEUROPATHY PERIPHERAL
     Dosage: 25mg in morning, 25mg in middle of day and 100mg at night
     Route: 048
  2. METHADONE [Suspect]
     Indication: NEUROPATHY PERIPHERAL
     Dosage: 10 mg, 2x/day
  3. KALETRA [Concomitant]
     Indication: HIV INFECTION
     Dosage: 400 mg, 2x/day

REACTIONS (4)
  - Myocardial infarction [Recovered/Resolved]
  - Aspiration [Unknown]
  - Tooth loss [Not Recovered/Not Resolved]
  - Cerebrovascular accident [Unknown]
